FAERS Safety Report 6275780-3 (Version None)
Quarter: 2009Q3

REPORT INFORMATION
  Report Type: 
  Country: None (occurrence: None)
  Receive Date: 20090721
  Receipt Date: 20090710
  Transmission Date: 20100115
  Serious: Yes (Death, Hospitalization)
  Sender: FDA-Public Use
  Company Number: PH-BAXTER-2009BH011511

PATIENT
  Age: 63 Year
  Sex: Female

DRUGS (1)
  1. DIANEAL [Suspect]
     Indication: PERITONEAL DIALYSIS
     Route: 033
     Dates: start: 20071125

REACTIONS (4)
  - ASTHENIA [None]
  - DECREASED APPETITE [None]
  - DECREASED IMMUNE RESPONSIVENESS [None]
  - LOSS OF CONSCIOUSNESS [None]
